FAERS Safety Report 12248238 (Version 2)
Quarter: 2016Q2

REPORT INFORMATION
  Report Type: Report from Study
  Country: IT (occurrence: IT)
  Receive Date: 20160408
  Receipt Date: 20160608
  Transmission Date: 20160815
  Serious: Yes (Other)
  Sender: FDA-Public Use
  Company Number: IT-ACCORD-039392

PATIENT
  Age: 32 Month
  Sex: Male

DRUGS (11)
  1. CYTARABINE/CYTARABINE HYDROCHLORIDE/CYTARABINE OCFOSFATE [Suspect]
     Active Substance: CYTARABINE
     Indication: POST TRANSPLANT LYMPHOPROLIFERATIVE DISORDER
     Dosage: BLOCK AA: 120 TO 150 MG/M2 EVERY 12 HOURS?BLOCK CC: 3000 MG/M2 EVERY 12 HOURS
  2. VINCRISTINE [Suspect]
     Active Substance: VINCRISTINE
     Indication: POST TRANSPLANT LYMPHOPROLIFERATIVE DISORDER
     Dosage: BLOCK AA:1.5 MG/M2?BLOCK BB:1.5 MG/M2
  3. METHYLPREDNISOLONE. [Suspect]
     Active Substance: METHYLPREDNISOLONE
     Indication: POST TRANSPLANT LYMPHOPROLIFERATIVE DISORDER
     Route: 037
  4. CYCLOPHOSPHAMIDE/CYCLOPHOSPHAMIDE MONOHYDRATE [Suspect]
     Active Substance: CYCLOPHOSPHAMIDE
     Indication: POST TRANSPLANT LYMPHOPROLIFERATIVE DISORDER
     Dosage: BLOCK BB: 160 TO 200 MG/M2 DAILY
  5. IFOSFAMIDE. [Suspect]
     Active Substance: IFOSFAMIDE
     Indication: POST TRANSPLANT LYMPHOPROLIFERATIVE DISORDER
     Dosage: BLOCK AA: 600 TO 800 MG/M2
  6. ETOPOSIDE. [Suspect]
     Active Substance: ETOPOSIDE
     Indication: POST TRANSPLANT LYMPHOPROLIFERATIVE DISORDER
     Dosage: BLOCK AA: 80 TO 100 MG/M2?BLOCK CC: 100 MG/M2 EVERY 12 HOURS
  7. METHOTREXATE [Suspect]
     Active Substance: METHOTREXATE
     Indication: POST TRANSPLANT LYMPHOPROLIFERATIVE DISORDER
     Dosage: BLOCK AA: 1.5 TO 3 G/M2?BLOCK BB: 1.5 TO 3 G/M2?ALSO RECEIBED INTRATHECAL METHOTREXATE
  8. RITUXIMAB [Suspect]
     Active Substance: RITUXIMAB
     Indication: POST TRANSPLANT LYMPHOPROLIFERATIVE DISORDER
  9. VINDESINE/VINDESINE SULFATE [Suspect]
     Active Substance: VINDESINE
     Indication: POST TRANSPLANT LYMPHOPROLIFERATIVE DISORDER
     Dosage: BLOCK CC: 3 MG/M2
  10. DEXAMETHASONE. [Suspect]
     Active Substance: DEXAMETHASONE
     Indication: POST TRANSPLANT LYMPHOPROLIFERATIVE DISORDER
     Dosage: BLOCK AA: 10 MG/M2?BLOCK BB: 10 MG/M2?BLOCK CC: 20 MG/M2
  11. DAUNORUBICIN [Suspect]
     Active Substance: DAUNORUBICIN
     Indication: POST TRANSPLANT LYMPHOPROLIFERATIVE DISORDER
     Dosage: BLOCK BB:20 TO 25 MG/M2

REACTIONS (2)
  - Nervous system disorder [Unknown]
  - Renal impairment [Unknown]
